FAERS Safety Report 9198402 (Version 1)
Quarter: 2013Q1

REPORT INFORMATION
  Report Type: Spontaneous
  Country: GB (occurrence: None)
  Receive Date: 20130326
  Receipt Date: 20130326
  Transmission Date: 20140127
  Serious: Yes (Death, Other)
  Sender: FDA-Public Use
  Company Number: 2013-05099

PATIENT
  Age: 98 Year
  Sex: Male

DRUGS (6)
  1. SPIRONOLACTONE [Suspect]
     Indication: PRODUCT USED FOR UNKNOWN INDICATION
     Dosage: HALF DOSE, ORAL
     Route: 048
     Dates: start: 20130115, end: 20130205
  2. BISOPROLOL [Concomitant]
  3. LISINOPRIL (LISINOPRIL) [Concomitant]
  4. ASPIRIN (ACETYLSALICYLIC ACID) [Concomitant]
  5. LAXATIVE (SENNOSIDE A+B) [Concomitant]
  6. ACETAMINOPHEN\CAFFEINE [Suspect]

REACTIONS (9)
  - Myocardial infarction [None]
  - Oedema peripheral [None]
  - Somnolence [None]
  - Dyspnoea [None]
  - Tremor [None]
  - Confusional state [None]
  - Condition aggravated [None]
  - Fall [None]
  - Drug prescribing error [None]
